FAERS Safety Report 15781220 (Version 3)
Quarter: 2019Q1

REPORT INFORMATION
  Report Type: Spontaneous
  Country: KR (occurrence: KR)
  Receive Date: 20190102
  Receipt Date: 20190301
  Transmission Date: 20190417
  Serious: Yes (Death, Hospitalization, Other)
  Sender: FDA-Public Use
  Company Number: KR-SA-2018SA396934

PATIENT
  Age: 73 Year
  Sex: Male

DRUGS (5)
  1. TAXOTERE [Suspect]
     Active Substance: DOCETAXEL
     Dosage: 64MG/M2 (BAS: 1.6/40MG/M2) (BIWEEKLY) QOW
     Route: 042
     Dates: start: 20181220, end: 20181220
  2. TAXOTERE [Suspect]
     Active Substance: DOCETAXEL
     Indication: PROSTATE CANCER
     Dosage: 64MG/M2 (BAS: 1.6/40MG/M2) (BIWEEKLY) QOW
     Route: 042
     Dates: start: 20181204, end: 20181204
  3. TAXOTERE [Suspect]
     Active Substance: DOCETAXEL
     Dosage: 51.2 MG/M2 (BAS: 1.6/32 MG/M2) (BIWEEKLY) QOW
     Route: 042
     Dates: start: 20190110, end: 20190110
  4. LEUPROLIDE ACETATE. [Suspect]
     Active Substance: LEUPROLIDE ACETATE
     Indication: PROSTATE CANCER
     Dosage: 11.25 MG, Q3M
     Route: 058
     Dates: start: 20181204, end: 20181204
  5. TAXOTERE [Suspect]
     Active Substance: DOCETAXEL
     Dosage: 41.6 MG/M2 (BAS: 1.6/26 MG/M2) (BIWEEKLY) QOW
     Route: 042
     Dates: start: 20190213, end: 20190213

REACTIONS (4)
  - Asthenia [Unknown]
  - Decreased appetite [Unknown]
  - Haematochezia [Recovered/Resolved]
  - Sudden death [Fatal]

NARRATIVE: CASE EVENT DATE: 20181222
